FAERS Safety Report 9324814 (Version 2)
Quarter: 2013Q2

REPORT INFORMATION
  Report Type: Spontaneous
  Country: IT (occurrence: None)
  Receive Date: 20130529
  Receipt Date: 20130625
  Transmission Date: 20140414
  Serious: Yes (Other)
  Sender: FDA-Public Use
  Company Number: 2013AP005382

PATIENT
  Age: 32 Year
  Sex: Female

DRUGS (3)
  1. CETIRIZINE (CETIRIZINE) [Suspect]
     Indication: SUICIDE ATTEMPT
     Dosage: 10 DF
  2. CIPROFLOXACIN HYDROCHLORIDE [Suspect]
     Indication: SUICIDE ATTEMPT
  3. KETOPROFEN LYSINE [Suspect]
     Indication: SUICIDE ATTEMPT
     Dosage: 6 DF

REACTIONS (2)
  - Drug abuse [None]
  - Suicide attempt [None]
